FAERS Safety Report 9693021 (Version 1)
Quarter: 2013Q4

REPORT INFORMATION
  Report Type: Spontaneous
  Country: US (occurrence: US)
  Receive Date: 20131118
  Receipt Date: 20131118
  Transmission Date: 20140711
  Serious: Yes (Other)
  Sender: FDA-Public Use
  Company Number: US-BAYER-2013-136962

PATIENT
  Age: 67 Year
  Sex: Male
  Weight: 90.7 kg

DRUGS (3)
  1. PHILLIPS^ MILK OF MAGNESIA [Suspect]
     Indication: CONSTIPATION
     Dosage: 4 TABLESPOON, PRN
     Route: 048
  2. BAYER ASPIRIN SUGAR FREE LOW DOSE ENTERIC [Concomitant]
     Indication: ISCHAEMIC HEART DISEASE PROPHYLAXIS
  3. INSULIN [Concomitant]

REACTIONS (5)
  - Blood glucose increased [Recovered/Resolved]
  - Blood glucose increased [Not Recovered/Not Resolved]
  - Drug ineffective [None]
  - Nausea [Not Recovered/Not Resolved]
  - Sluggishness [Not Recovered/Not Resolved]
